FAERS Safety Report 7426837-2 (Version None)
Quarter: 2011Q2

REPORT INFORMATION
  Report Type: 
  Country: None (occurrence: None)
  Receive Date: 20110420
  Receipt Date: 20110419
  Transmission Date: 20111010
  Serious: Yes (Death)
  Sender: FDA-Public Use
  Company Number: US-B.I. PHARMACEUTICALS,INC./RIDGEFIELD-2011-BP-03802BP

PATIENT
  Sex: Female

DRUGS (5)
  1. TOPROL-XL [Concomitant]
     Indication: HYPERTENSION
  2. LISINOPRIL [Concomitant]
     Indication: HYPERTENSION
  3. DIGOXIN [Concomitant]
     Indication: ATRIAL FIBRILLATION
  4. FUROSEMIDE [Concomitant]
     Indication: FLUID RETENTION
  5. PRADAXA [Suspect]
     Indication: ATRIAL FIBRILLATION
     Dosage: 300 MG
     Route: 048
     Dates: start: 20110201

REACTIONS (3)
  - DEATH [None]
  - DYSPEPSIA [None]
  - ABDOMINAL PAIN UPPER [None]
